FAERS Safety Report 20391363 (Version 1)
Quarter: 2022Q1

REPORT INFORMATION
  Report Type: Spontaneous
  Country: US (occurrence: None)
  Receive Date: 20220127
  Receipt Date: 20220127
  Transmission Date: 20220423
  Serious: Yes (Disabling)
  Sender: FDA-Public Use
  Company Number: None

PATIENT
  Age: 78 Year
  Sex: Female
  Weight: 47.25 kg

DRUGS (1)
  1. HYDROMORPHONE [Suspect]
     Active Substance: HYDROMORPHONE
     Indication: Pain
     Dosage: OTHER QUANTITY : 1 TABLET(S);?FREQUENCY : EVERY 4 HOURS;?
     Route: 048
     Dates: start: 20211216

REACTIONS (6)
  - Product substitution issue [None]
  - Inadequate analgesia [None]
  - Pain [None]
  - Loss of personal independence in daily activities [None]
  - Impaired quality of life [None]
  - Breakthrough pain [None]

NARRATIVE: CASE EVENT DATE: 20211216
